FAERS Safety Report 7878414-7 (Version None)
Quarter: 2011Q4

REPORT INFORMATION
  Report Type: 
  Country: None (occurrence: None)
  Receive Date: 20111004
  Receipt Date: 20110714
  Transmission Date: 20120403
  Serious: Yes (Hospitalization)
  Sender: FDA-Public Use
  Company Number: ADE 11-006

PATIENT
  Age: 49 Year
  Sex: Male

DRUGS (2)
  1. HEPARIN SODIUM [Suspect]
     Dates: start: 20110610
  2. INTEGRILLIN 2 MG. SCHERING/PLOUGH [Suspect]

REACTIONS (1)
  - THROMBOCYTOPENIA [None]
